FAERS Safety Report 8614230-6 (Version None)
Quarter: 2012Q3

REPORT INFORMATION
  Report Type: 
  Country: None (occurrence: None)
  Receive Date: 20120823
  Receipt Date: 20120820
  Transmission Date: 20120928
  Serious: Yes (Other)
  Sender: FDA-Public Use
  Company Number: US-PFIZER INC-2012203855

PATIENT
  Age: 56 Year
  Sex: Male
  Weight: 96.599 kg

DRUGS (3)
  1. NAVANE [Suspect]
     Indication: HALLUCINATION
     Dosage: UNK
  2. NAVANE [Suspect]
     Indication: DEPRESSION
  3. GEODON [Concomitant]
     Dosage: UNK

REACTIONS (2)
  - DRUG INEFFECTIVE [None]
  - EXTRAPYRAMIDAL DISORDER [None]
